FAERS Safety Report 23387437 (Version 1)
Quarter: 2024Q1

REPORT INFORMATION
  Report Type: Spontaneous
  Country: US (occurrence: US)
  Receive Date: 20240110
  Receipt Date: 20240110
  Transmission Date: 20240410
  Serious: Yes (Life-Threatening, Hospitalization)
  Sender: FDA-Public Use
  Company Number: US-MYLANLABS-2024M1002540

PATIENT
  Age: 38 Year
  Sex: Male

DRUGS (9)
  1. METHIMAZOLE [Suspect]
     Active Substance: METHIMAZOLE
     Indication: Graves^ disease
     Dosage: 30 MILLIGRAM, BID
     Route: 065
  2. PROPRANOLOL [Suspect]
     Active Substance: PROPRANOLOL HYDROCHLORIDE
     Indication: Atrial fibrillation
     Dosage: 40 MILLIGRAM, TID; THREE TIMES A DAY
     Route: 065
  3. PROPRANOLOL [Suspect]
     Active Substance: PROPRANOLOL HYDROCHLORIDE
     Indication: Tachyarrhythmia
     Dosage: UNK
     Route: 065
  4. PROPRANOLOL [Suspect]
     Active Substance: PROPRANOLOL HYDROCHLORIDE
     Indication: Cardiac failure
  5. DILTIAZEM [Suspect]
     Active Substance: DILTIAZEM
     Indication: Atrial fibrillation
     Dosage: 90 MILLIGRAM, QID; FOUR TIME A DAY
     Route: 065
  6. DILTIAZEM [Suspect]
     Active Substance: DILTIAZEM
     Indication: Tachyarrhythmia
  7. DILTIAZEM [Suspect]
     Active Substance: DILTIAZEM
     Indication: Cardiac failure
  8. POTASSIUM IODIDE [Suspect]
     Active Substance: POTASSIUM IODIDE
     Indication: Graves^ disease
     Dosage: 3 DROP, TID; 3 DROPS 3 TIMES A DAY
     Route: 065
  9. CHOLESTYRAMINE [Suspect]
     Active Substance: CHOLESTYRAMINE
     Indication: Graves^ disease
     Dosage: 2 GRAM, BID
     Route: 065

REACTIONS (1)
  - Drug ineffective [Unknown]
